FAERS Safety Report 6081743-3 (Version None)
Quarter: 2009Q1

REPORT INFORMATION
  Report Type: 
  Country: None (occurrence: None)
  Receive Date: 20090126
  Receipt Date: 20080619
  Transmission Date: 20090719
  Serious: Yes (Hospitalization)
  Sender: FDA-Public Use
  Company Number: 8033701

PATIENT
  Age: 62 Year
  Sex: Female

DRUGS (3)
  1. ZAROXOLYN [Suspect]
  2. LASIX [Suspect]
  3. REVLIMID [Suspect]
     Indication: MULTIPLE MYELOMA
     Dosage: 25 MG /D

REACTIONS (3)
  - BLOOD SODIUM DECREASED [None]
  - FATIGUE [None]
  - JOINT SWELLING [None]
